FAERS Safety Report 21647306 (Version 2)
Quarter: 2023Q2

REPORT INFORMATION
  Report Type: Spontaneous
  Country: US (occurrence: US)
  Receive Date: 20221127
  Receipt Date: 20230602
  Transmission Date: 20230721
  Serious: No
  Sender: FDA-Public Use
  Company Number: US-GLAXOSMITHKLINE-US2022AMR174667

PATIENT
  Sex: Female
  Weight: 55.329 kg

DRUGS (2)
  1. ZEJULA [Suspect]
     Active Substance: NIRAPARIB
     Indication: Ovarian cancer
     Dosage: 100 MG, QD
     Route: 048
     Dates: start: 20221020
  2. ZEJULA [Suspect]
     Active Substance: NIRAPARIB
     Dosage: 200 MG, QD
     Route: 048

REACTIONS (7)
  - Migraine [Unknown]
  - Insomnia [Unknown]
  - Fatigue [Unknown]
  - Hypertension [Unknown]
  - Dry mouth [Unknown]
  - Chills [Unknown]
  - Feeling hot [Unknown]
